FAERS Safety Report 19031126 (Version 1)
Quarter: 2021Q1

REPORT INFORMATION
  Report Type: Spontaneous
  Country: US (occurrence: US)
  Receive Date: 20210319
  Receipt Date: 20210319
  Transmission Date: 20210420
  Serious: Yes (Other)
  Sender: FDA-Public Use
  Company Number: US-TEVA-2021-US-1892550

PATIENT

DRUGS (7)
  1. TRAMADOL. [Suspect]
     Active Substance: TRAMADOL
     Route: 065
  2. METHOCARBAMOL. [Suspect]
     Active Substance: METHOCARBAMOL
     Route: 065
  3. SCOPALAMINE [Suspect]
     Active Substance: SCOPOLAMINE
     Route: 065
  4. BENADRYL [Suspect]
     Active Substance: DIPHENHYDRAMINE HYDROCHLORIDE
     Route: 065
  5. SOMA [Suspect]
     Active Substance: CARISOPRODOL
     Route: 065
  6. HYDROCODONE [Suspect]
     Active Substance: HYDROCODONE
     Route: 065
  7. OXYCODONE [Suspect]
     Active Substance: OXYCODONE
     Route: 065

REACTIONS (7)
  - Dependence [Unknown]
  - Road traffic accident [Unknown]
  - Illness [Unknown]
  - Neck injury [Unknown]
  - Pruritus [Unknown]
  - Back injury [Unknown]
  - Surgery [Unknown]
